FAERS Safety Report 11514520 (Version 1)
Quarter: 2015Q3

REPORT INFORMATION
  Report Type: Spontaneous
  Country: US (occurrence: US)
  Receive Date: 20150916
  Receipt Date: 20150916
  Transmission Date: 20151125
  Serious: Yes (Other)
  Sender: FDA-Public Use
  Company Number: US-AMGEN-USASP2015094111

PATIENT
  Age: 90 Year
  Sex: Female

DRUGS (1)
  1. NPLATE [Suspect]
     Active Substance: ROMIPLOSTIM
     Indication: THROMBOCYTOPENIA
     Dosage: UNK UNK, QWK
     Route: 058
     Dates: start: 201203

REACTIONS (3)
  - Platelet count abnormal [Unknown]
  - Drug effect decreased [Unknown]
  - Living in residential institution [Unknown]

NARRATIVE: CASE EVENT DATE: 20150709
